FAERS Safety Report 8986111 (Version 1)
Quarter: 2012Q4

REPORT INFORMATION
  Report Type: Spontaneous
  Country: FR (occurrence: None)
  Receive Date: 20121005
  Receipt Date: 20121005
  Transmission Date: 20130627
  Serious: Yes (Other)
  Sender: FDA-Public Use
  Company Number: 218986

PATIENT
  Sex: Female

DRUGS (1)
  1. INNOHEP (TINZAPARIN SODIUM) [Suspect]
     Indication: DRUG USE FOR UNKNOWN INDICATION
     Route: 058
     Dates: start: 20120323, end: 20120331

REACTIONS (9)
  - Erythema [None]
  - Injection site reaction [None]
  - Purpura [None]
  - Arthralgia [None]
  - Arthralgia [None]
  - Hypergammaglobulinaemia [None]
  - C-reactive protein increased [None]
  - Bacteriuria [None]
  - Cutaneous vasculitis [None]
